FAERS Safety Report 24789880 (Version 1)
Quarter: 2024Q4

REPORT INFORMATION
  Report Type: Spontaneous
  Country: GB (occurrence: GB)
  Receive Date: 20241230
  Receipt Date: 20241230
  Transmission Date: 20250115
  Serious: Yes (Other)
  Sender: NOVO NORDISK
  Company Number: GB-NOVOPROD-1339114

PATIENT
  Age: 54 Year
  Sex: Male

DRUGS (1)
  1. ESPEROCT [Suspect]
     Active Substance: ANTIHEMOPHILIC FACTOR, HUMAN RECOMBINANT
     Indication: Haemophilia A without inhibitors
     Dosage: UNK

REACTIONS (3)
  - Haemophilic arthropathy [Recovering/Resolving]
  - Haemorrhage [Recovering/Resolving]
  - Arthralgia [Recovering/Resolving]
